FAERS Safety Report 22117557 (Version 2)
Quarter: 2024Q3

REPORT INFORMATION
  Report Type: Report from Study
  Country: US (occurrence: US)
  Receive Date: 20230321
  Receipt Date: 20240806
  Transmission Date: 20241017
  Serious: No
  Sender: MERCK
  Company Number: US-009507513-2303USA003114

PATIENT
  Age: 74 Year

DRUGS (2)
  1. JANUMET [Suspect]
     Active Substance: METFORMIN HYDROCHLORIDE\SITAGLIPTIN PHOSPHATE
     Dosage: 50/1000MG 1 TABLET TWICE DAILY
     Route: 048
     Dates: end: 202301
  2. JANUMET [Suspect]
     Active Substance: METFORMIN HYDROCHLORIDE\SITAGLIPTIN PHOSPHATE
     Dosage: THREE TIMES A DAY
     Route: 048
     Dates: end: 20240726

REACTIONS (6)
  - Product use issue [Unknown]
  - Product dose omission issue [Unknown]
  - Product dose omission issue [Unknown]
  - Product use issue [Unknown]
  - Inappropriate schedule of product administration [Unknown]
  - No adverse event [Unknown]

NARRATIVE: CASE EVENT DATE: 20230101
